FAERS Safety Report 24411745 (Version 4)
Quarter: 2025Q1

REPORT INFORMATION
  Report Type: Spontaneous
  Country: US (occurrence: None)
  Receive Date: 20241008
  Receipt Date: 20250319
  Transmission Date: 20250409
  Serious: No
  Sender: INCYTE
  Company Number: US-INCYTE CORPORATION-2024IN010243

PATIENT

DRUGS (2)
  1. JAKAFI [Suspect]
     Active Substance: RUXOLITINIB
     Indication: Polycythaemia vera
     Dosage: 10 MILLIGRAM, BID
  2. JAKAFI [Suspect]
     Active Substance: RUXOLITINIB

REACTIONS (11)
  - Rash [Unknown]
  - Pyrexia [Unknown]
  - Nasopharyngitis [Unknown]
  - Dry skin [Unknown]
  - Fatigue [Unknown]
  - Vision blurred [Unknown]
  - Night sweats [Unknown]
  - Product dose omission in error [Unknown]
  - Dizziness [Unknown]
  - Headache [Unknown]
  - Weight increased [Unknown]
